FAERS Safety Report 23694515 (Version 1)
Quarter: 2024Q2

REPORT INFORMATION
  Report Type: Report from Study
  Country: AR (occurrence: AR)
  Receive Date: 20240401
  Receipt Date: 20240401
  Transmission Date: 20240716
  Serious: Yes (Death)
  Sender: FDA-Public Use
  Company Number: AR-MALLINCKRODT-MNK202402250

PATIENT
  Age: 15 Year
  Sex: Female
  Weight: 49 kg

DRUGS (3)
  1. UVADEX [Suspect]
     Active Substance: METHOXSALEN
     Indication: Chronic graft versus host disease
     Dosage: 2 SESSIONS EVERY 2 WEEKS
     Route: 050
  2. TACROLIMUS [Concomitant]
     Active Substance: TACROLIMUS
     Dosage: UNKNOWN
  3. ETANERCEPT [Concomitant]
     Active Substance: ETANERCEPT
     Indication: Immunosuppressant drug therapy
     Dosage: UNNOWN

REACTIONS (2)
  - Opportunistic infection [Fatal]
  - Product use in unapproved indication [Unknown]
